FAERS Safety Report 5916654-4 (Version None)
Quarter: 2008Q4

REPORT INFORMATION
  Report Type: 
  Country: None (occurrence: None)
  Receive Date: 20081013
  Receipt Date: 20080930
  Transmission Date: 20090506
  Serious: Yes (Death)
  Sender: FDA-Public Use
  Company Number: BR-ROCHE-589209

PATIENT
  Age: 52 Year
  Sex: Male

DRUGS (6)
  1. PEGASYS [Suspect]
     Indication: HEPATITIS C
     Route: 058
     Dates: start: 20070101
  2. PEGASYS [Suspect]
     Dosage: DOSE DECREASED
     Route: 058
  3. PEGASYS [Suspect]
     Dosage: FULL DOSAGE
     Route: 058
     Dates: end: 20080801
  4. RIBAVIRIN [Concomitant]
     Indication: HEPATITIS C
     Route: 058
     Dates: start: 20070101
  5. RIBAVIRIN [Concomitant]
     Dosage: DOSE DECREASED
     Route: 058
  6. RIBAVIRIN [Concomitant]
     Dosage: FULL DOSAGE
     Route: 058
     Dates: end: 20080801

REACTIONS (6)
  - ANAEMIA [None]
  - CARDIO-RESPIRATORY ARREST [None]
  - DEPRESSED LEVEL OF CONSCIOUSNESS [None]
  - MENTAL DISORDER [None]
  - PERIPHERAL COLDNESS [None]
  - SUDDEN DEATH [None]
